FAERS Safety Report 9617465 (Version 1)
Quarter: 2013Q4

REPORT INFORMATION
  Report Type: Spontaneous
  Country: US (occurrence: None)
  Receive Date: 20131009
  Receipt Date: 20131009
  Transmission Date: 20140711
  Serious: Yes (Other)
  Sender: FDA-Public Use
  Company Number: ACO_38806_2013

PATIENT
  Age: 67 Year
  Sex: Female
  Weight: 49.9 kg

DRUGS (4)
  1. AMPYRA [Suspect]
     Indication: GAIT DISTURBANCE
     Route: 048
     Dates: start: 20130917
  2. METOPROLOL (METOPROLOL TARTRATE) [Concomitant]
  3. OCUVITE (ASCORBIC ACID , RETINOL) [Concomitant]
  4. SIMVASTATIN (SIMVASTATIN) [Concomitant]

REACTIONS (4)
  - Blindness [None]
  - Diplopia [None]
  - Influenza like illness [None]
  - Dizziness [None]
